FAERS Safety Report 16790210 (Version 1)
Quarter: 2019Q3

REPORT INFORMATION
  Report Type: Spontaneous
  Country: US (occurrence: US)
  Receive Date: 20190910
  Receipt Date: 20190910
  Transmission Date: 20191005
  Serious: No
  Sender: FDA-Public Use
  Company Number: PHEH2019US037221

PATIENT
  Age: 56 Year
  Sex: Female

DRUGS (1)
  1. VOTRIENT [Suspect]
     Active Substance: PAZOPANIB HYDROCHLORIDE
     Indication: MALIGNANT PERITONEAL NEOPLASM
     Dosage: 200 MG, QD
     Route: 048
     Dates: start: 201908

REACTIONS (3)
  - Body temperature abnormal [Unknown]
  - Stomatitis [Unknown]
  - Oral pain [Unknown]

NARRATIVE: CASE EVENT DATE: 201908
